FAERS Safety Report 8391965-4 (Version None)
Quarter: 2012Q2

REPORT INFORMATION
  Report Type: 
  Country: None (occurrence: None)
  Receive Date: 20120529
  Receipt Date: 20120521
  Transmission Date: 20120825
  Serious: Yes (Other)
  Sender: FDA-Public Use
  Company Number: CN-GLAXOSMITHKLINE-B0804133A

PATIENT
  Age: 33 Year
  Sex: Female

DRUGS (1)
  1. CEFUROXIME SODIUM [Suspect]
     Indication: PELVIC INFLAMMATORY DISEASE
     Route: 042
     Dates: start: 20110612, end: 20110701

REACTIONS (9)
  - BACK PAIN [None]
  - PYREXIA [None]
  - ARTHRALGIA [None]
  - HYPERHIDROSIS [None]
  - INFLUENZA [None]
  - DYSPNOEA [None]
  - MYALGIA [None]
  - ABDOMINAL PAIN [None]
  - CHEST DISCOMFORT [None]
